FAERS Safety Report 7812399-4 (Version None)
Quarter: 2011Q4

REPORT INFORMATION
  Report Type: 
  Country: None (occurrence: None)
  Receive Date: 20111013
  Receipt Date: 20111004
  Transmission Date: 20120403
  Serious: Yes (Hospitalization)
  Sender: FDA-Public Use
  Company Number: DE-JNJFOC-20110902759

PATIENT
  Sex: Female

DRUGS (1)
  1. HALDOL [Suspect]
     Indication: AGGRESSION
     Route: 042
     Dates: start: 20110906, end: 20110906

REACTIONS (2)
  - APPLICATION SITE INFLAMMATION [None]
  - INCORRECT ROUTE OF DRUG ADMINISTRATION [None]
